FAERS Safety Report 6585264-0 (Version None)
Quarter: 2010Q1

REPORT INFORMATION
  Report Type: 
  Country: None (occurrence: None)
  Receive Date: 20100204
  Receipt Date: 20100122
  Transmission Date: 20100710
  Serious: Yes (Other)
  Sender: FDA-Public Use
  Company Number: 1022556-2010-00005

PATIENT
  Age: 79 Year
  Sex: Male

DRUGS (2)
  1. GOLD BOND MED MOISTURIZING BODY LOTION [Suspect]
     Indication: DRY SKIN
     Dosage: APPLIED PM, TOPICALLY
     Route: 061
  2. GOLD BOND MED MOISTURIZING BODY LOTION [Suspect]
     Indication: PRURITUS
     Dosage: APPLIED PM, TOPICALLY
     Route: 061

REACTIONS (1)
  - RASH PRURITIC [None]
